FAERS Safety Report 5492803-X (Version None)
Quarter: 2007Q4

REPORT INFORMATION
  Report Type: 
  Country: None (occurrence: None)
  Receive Date: 20071023
  Receipt Date: 20071015
  Transmission Date: 20080405
  Serious: Yes (Death, Hospitalization)
  Sender: FDA-Public Use
  Company Number: US-ELI_LILLY_AND_COMPANY-US200710003785

PATIENT
  Sex: Male

DRUGS (1)
  1. SYMBYAX [Suspect]
     Indication: BIPOLAR I DISORDER
     Dosage: UNK, UNK
     Dates: start: 20071001

REACTIONS (3)
  - INFECTION [None]
  - PYREXIA [None]
  - SEPSIS [None]
